FAERS Safety Report 21958013 (Version 1)
Quarter: 2023Q1

REPORT INFORMATION
  Report Type: Spontaneous
  Country: GB (occurrence: GB)
  Receive Date: 20230206
  Receipt Date: 20230206
  Transmission Date: 20230417
  Serious: Yes (Death)
  Sender: FDA-Public Use
  Company Number: GB-EXELIXIS-CABO-21045202

PATIENT
  Age: 20 Year
  Sex: Male

DRUGS (1)
  1. CABOMETYX [Suspect]
     Active Substance: CABOZANTINIB S-MALATE
     Indication: Osteosarcoma
     Dosage: 40 MG, QD
     Route: 048

REACTIONS (2)
  - General physical health deterioration [Fatal]
  - Off label use [Unknown]
